FAERS Safety Report 21960998 (Version 1)
Quarter: 2023Q1

REPORT INFORMATION
  Report Type: Spontaneous
  Country: PT (occurrence: PT)
  Receive Date: 20230207
  Receipt Date: 20230207
  Transmission Date: 20230417
  Serious: Yes (Hospitalization, Other)
  Sender: FDA-Public Use
  Company Number: PT-TEVA-2023-PT-2849860

PATIENT
  Age: 37 Year
  Sex: Female

DRUGS (2)
  1. CLINDAMYCIN [Suspect]
     Active Substance: CLINDAMYCIN
     Indication: Antibiotic therapy
     Dosage: 300 MILLIGRAM, 3 TIMES A DAY (1800 MILLIGRAM DAILY; 300 MG ORAL USE EACH 6G HOURS)
     Route: 048
  2. AMOXICILLIN\CLAVULANIC ACID [Suspect]
     Active Substance: AMOXICILLIN\CLAVULANIC ACID
     Indication: Antibiotic therapy
     Dosage: 1 DOSAGE FORM, ONCE A DAY (2 DOSAGE FORMS DAILY; 1 DOSAGE FORM IS COMPOSEED BY 875 MG/125 MG)
     Route: 048

REACTIONS (2)
  - Febrile neutropenia [Recovering/Resolving]
  - Off label use [Unknown]
